FAERS Safety Report 12133529 (Version 3)
Quarter: 2020Q3

REPORT INFORMATION
  Report Type: Report from Study
  Country: JP (occurrence: JP)
  Receive Date: 20160301
  Receipt Date: 20161020
  Transmission Date: 20201104
  Serious: Yes (Hospitalization)
  Sender: FDA-Public Use
  Company Number: JP-ROCHE-1625325

PATIENT
  Age: 79 Year
  Sex: Male
  Weight: 63 kg

DRUGS (19)
  1. MAGMITT [Concomitant]
     Active Substance: MAGNESIUM OXIDE
     Route: 048
  2. CONTOMIN [Concomitant]
     Active Substance: CHLORPROMAZINE
     Indication: PROPHYLAXIS
     Route: 048
     Dates: start: 20150403, end: 20150407
  3. CYMBALTA [Concomitant]
     Active Substance: DULOXETINE HYDROCHLORIDE
     Indication: PROPHYLAXIS
     Route: 048
     Dates: start: 20150409
  4. ALECTINIB. [Suspect]
     Active Substance: ALECTINIB
     Indication: LUNG ADENOCARCINOMA
     Route: 048
     Dates: start: 20141209, end: 20150401
  5. TAKEPRON [Concomitant]
     Active Substance: LANSOPRAZOLE
     Route: 048
  6. ETIZOLAM [Concomitant]
     Active Substance: ETIZOLAM
     Indication: PROPHYLAXIS
     Route: 048
     Dates: end: 20150324
  7. ALECTINIB. [Suspect]
     Active Substance: ALECTINIB
     Route: 048
     Dates: start: 20160209
  8. LECICARBON (JAPAN) [Concomitant]
     Dosage: TAKEN AS NEEDED
     Route: 054
     Dates: start: 20150108
  9. JZOLOFT [Concomitant]
     Active Substance: SERTRALINE HYDROCHLORIDE
     Indication: PROPHYLAXIS
     Route: 048
     Dates: start: 20150403
  10. AMLODIPINE [Concomitant]
     Active Substance: AMLODIPINE BESYLATE
     Route: 048
     Dates: end: 20150407
  11. BROTIZOLAM [Concomitant]
     Active Substance: BROTIZOLAM
     Indication: PROPHYLAXIS
     Route: 048
     Dates: start: 20141211, end: 20150406
  12. CONSTAN (JAPAN) [Concomitant]
     Indication: PROPHYLAXIS
     Route: 048
     Dates: start: 20150403, end: 20150407
  13. ALIMTA [Concomitant]
     Active Substance: PEMETREXED DISODIUM
     Indication: LUNG ADENOCARCINOMA
     Dosage: I DISCONTINUE IT AFTER AN INTRAVENOUS DRIP FOR 20 DAYS FOR TEN MINUTES
     Route: 041
     Dates: start: 20160119, end: 20160119
  14. ALECTINIB. [Suspect]
     Active Substance: ALECTINIB
     Indication: LUNG ADENOCARCINOMA
     Route: 048
     Dates: start: 20150528, end: 20150613
  15. TAMSULOSIN HYDROCHLORIDE. [Concomitant]
     Active Substance: TAMSULOSIN HYDROCHLORIDE
     Route: 048
  16. VESICARE [Concomitant]
     Active Substance: SOLIFENACIN SUCCINATE
     Route: 048
  17. PICOSULFATE [Concomitant]
     Active Substance: SODIUM PICOSULFATE
     Dosage: TAKEN AS NEEDED
     Route: 048
  18. QUETIAPINE. [Concomitant]
     Active Substance: QUETIAPINE
     Indication: PROPHYLAXIS
     Route: 048
     Dates: start: 20150406, end: 20150415
  19. PURSENNID [Concomitant]
     Dosage: TAKEN AS NEEDED
     Route: 048

REACTIONS (2)
  - Depression [Recovering/Resolving]
  - Blood creatine phosphokinase increased [Recovered/Resolved]

NARRATIVE: CASE EVENT DATE: 20141218
